FAERS Safety Report 11518310 (Version 5)
Quarter: 2016Q2

REPORT INFORMATION
  Report Type: Spontaneous
  Country: US (occurrence: US)
  Receive Date: 20150917
  Receipt Date: 20160429
  Transmission Date: 20160815
  Serious: Yes (Other)
  Sender: FDA-Public Use
  Company Number: US-MDT-ADR-2015-01802

PATIENT
  Age: 31 Year
  Sex: Female

DRUGS (2)
  1. MANY MEDICATIONS, NAMES UNSPECIFIED [Suspect]
     Active Substance: UNSPECIFIED INGREDIENT
  2. BACLOFEN. [Suspect]
     Active Substance: BACLOFEN
     Route: 037

REACTIONS (4)
  - Muscle spasticity [Unknown]
  - Device breakage [None]
  - Cerebrospinal fluid leakage [Unknown]
  - Seizure [Unknown]
